FAERS Safety Report 7400668-1 (Version None)
Quarter: 2011Q1

REPORT INFORMATION
  Report Type: 
  Country: None (occurrence: None)
  Receive Date: 20110329
  Receipt Date: 20110314
  Transmission Date: 20110831
  Serious: Yes (Other)
  Sender: FDA-Public Use
  Company Number: 029201

PATIENT
  Sex: Male
  Weight: 122.2 kg

DRUGS (7)
  1. CIMZIA [Suspect]
     Indication: CROHN'S DISEASE
     Dosage: 400 MG, 1X/4 WEEKS, SUBCUTANEOUS
     Route: 058
     Dates: start: 20110113
  2. PROTONIX [Concomitant]
  3. FEXOFENADINE [Concomitant]
  4. PENTASA [Concomitant]
  5. LISINOPRIL [Concomitant]
  6. FLUOXETINE [Concomitant]
  7. ZOLPIDEM [Concomitant]

REACTIONS (5)
  - URTICARIA [None]
  - ALOPECIA [None]
  - GINGIVITIS [None]
  - ARTHRALGIA [None]
  - GINGIVAL BLEEDING [None]
